FAERS Safety Report 20158757 (Version 1)
Quarter: 2021Q4

REPORT INFORMATION
  Report Type: Spontaneous
  Country: US (occurrence: US)
  Receive Date: 20211208
  Receipt Date: 20211208
  Transmission Date: 20220303
  Serious: No
  Sender: FDA-Public Use
  Company Number: US-ELI_LILLY_AND_COMPANY-US202111005047

PATIENT
  Sex: Female

DRUGS (2)
  1. TRULICITY [Suspect]
     Active Substance: DULAGLUTIDE
     Indication: Type 2 diabetes mellitus
     Dosage: 0.75 MG, UNKNOWN
     Route: 058
     Dates: start: 202106, end: 202109
  2. GLIPIZIDE [Concomitant]
     Active Substance: GLIPIZIDE
     Indication: Product used for unknown indication
     Dosage: UNK, UNKNOWN
     Route: 065

REACTIONS (1)
  - Cyst [Recovering/Resolving]
